FAERS Safety Report 13924315 (Version 1)
Quarter: 2017Q3

REPORT INFORMATION
  Report Type: Spontaneous
  Country: US (occurrence: None)
  Receive Date: 20170824
  Receipt Date: 20170824
  Transmission Date: 20171127
  Serious: Yes (Disabling, Other)
  Sender: FDA-Public Use
  Company Number: None

PATIENT
  Age: 65 Year
  Sex: Male
  Weight: 64.86 kg

DRUGS (2)
  1. OMNISCAN [Suspect]
     Active Substance: GADODIAMIDE
  2. MAGNEVIST [Suspect]
     Active Substance: GADOPENTETATE DIMEGLUMINE

REACTIONS (9)
  - Cognitive disorder [None]
  - Immune system disorder [None]
  - Metal poisoning [None]
  - Petechiae [None]
  - Musculoskeletal disorder [None]
  - Skin disorder [None]
  - Serum ferritin increased [None]
  - Anaemia [None]
  - Headache [None]

NARRATIVE: CASE EVENT DATE: 20090701
